FAERS Safety Report 16596675 (Version 1)
Quarter: 2019Q3

REPORT INFORMATION
  Report Type: Spontaneous
  Country: US (occurrence: US)
  Receive Date: 20190605
  Receipt Date: 20190605
  Transmission Date: 20191004
  Serious: Yes (Hospitalization)
  Sender: FDA-Public Use
  Company Number: None

PATIENT
  Age: 66 Year
  Sex: Male
  Weight: 77.56 kg

DRUGS (5)
  1. CLARITIN [Concomitant]
     Active Substance: LORATADINE
  2. FISH OIL [Concomitant]
     Active Substance: FISH OIL
  3. ATEZOLIZUMAB 1200MG [Suspect]
     Active Substance: ATEZOLIZUMAB
     Indication: TRANSITIONAL CELL CANCER OF RENAL PELVIS AND URETER METASTATIC
     Route: 042
     Dates: start: 20190520
  4. LORAZEPAM 0.5MG [Concomitant]
     Active Substance: LORAZEPAM
  5. PGV-001 (PEPTIDES +POLY ICLC) [Suspect]
     Active Substance: INVESTIGATIONAL PRODUCT
     Indication: TRANSITIONAL CELL CANCER OF RENAL PELVIS AND URETER METASTATIC
     Dosage: ?          OTHER DOSE:PGV-001;OTHER FREQUENCY:5 DOSES;OTHER ROUTE:INTRA-CUTANEIOUS?
     Dates: start: 20190513, end: 20190604

REACTIONS (1)
  - Autoimmune hepatitis [None]

NARRATIVE: CASE EVENT DATE: 20190605
